FAERS Safety Report 11387604 (Version 3)
Quarter: 2015Q4

REPORT INFORMATION
  Report Type: Spontaneous
  Country: TW (occurrence: TW)
  Receive Date: 20150817
  Receipt Date: 20151005
  Transmission Date: 20160304
  Serious: Yes (Hospitalization)
  Sender: FDA-Public Use
  Company Number: TW-PFIZER INC-2015259260

PATIENT
  Age: 45 Year
  Sex: Male

DRUGS (1)
  1. SUTENT [Suspect]
     Active Substance: SUNITINIB MALATE
     Indication: RENAL CELL CARCINOMA
     Dosage: 50 MG ONCE DAILY, CYCLIC TWO WEEKS ON AND ONE WEEK OFF
     Route: 048
     Dates: start: 20150706

REACTIONS (6)
  - Road traffic accident [Recovered/Resolved]
  - Hypogeusia [Unknown]
  - Hand fracture [Recovered/Resolved]
  - Disease progression [Unknown]
  - Mouth ulceration [Unknown]
  - Renal cell carcinoma [Unknown]

NARRATIVE: CASE EVENT DATE: 20150730
